FAERS Safety Report 7368255-1 (Version None)
Quarter: 2011Q1

REPORT INFORMATION
  Report Type: 
  Country: None (occurrence: None)
  Receive Date: 20110311
  Receipt Date: 20110123
  Transmission Date: 20110831
  Serious: Yes (Death)
  Sender: FDA-Public Use
  Company Number: 1785

PATIENT
  Age: 27 Day
  Sex: Female
  Weight: 0.7 kg

DRUGS (8)
  1. CEFOTAXIME IV [Concomitant]
  2. ECONAZOLE NITRATE [Suspect]
     Indication: SKIN LESION
     Dosage: TOPICAL
     Route: 061
  3. AMPICILLIN [Concomitant]
  4. FUROSEMIDE [Concomitant]
  5. ORNIDAZOLE [Concomitant]
  6. IMIPENEM [Concomitant]
  7. AMIKACIN [Concomitant]
  8. DOPAMINE [Concomitant]

REACTIONS (7)
  - NEONATAL HYPOXIA [None]
  - OEDEMA NEONATAL [None]
  - NEONATAL ANURIA [None]
  - GENERALISED OEDEMA [None]
  - GASTROINTESTINAL HAEMORRHAGE [None]
  - TRACHEAL HAEMORRHAGE [None]
  - DEATH NEONATAL [None]
